FAERS Safety Report 24923909 (Version 3)
Quarter: 2025Q2

REPORT INFORMATION
  Report Type: Spontaneous
  Country: US (occurrence: US)
  Receive Date: 20250204
  Receipt Date: 20250429
  Transmission Date: 20250717
  Serious: No
  Sender: PFIZER
  Company Number: US-PFIZER INC-202500022510

PATIENT
  Age: 53 Year
  Sex: Female

DRUGS (1)
  1. CIBINQO [Suspect]
     Active Substance: ABROCITINIB
     Dosage: 100 MG, 1X/DAY
     Route: 048

REACTIONS (2)
  - Rash [Unknown]
  - Blood cholesterol increased [Unknown]
